FAERS Safety Report 7213294-4 (Version None)
Quarter: 2011Q1

REPORT INFORMATION
  Report Type: 
  Country: None (occurrence: None)
  Receive Date: 20110106
  Receipt Date: 20101228
  Transmission Date: 20110831
  Serious: Yes (Other)
  Sender: FDA-Public Use
  Company Number: DE-US-EMD SERONO, INC.-7031731

PATIENT
  Sex: Female

DRUGS (4)
  1. ASPIRIN [Concomitant]
  2. REBIF [Suspect]
     Route: 058
     Dates: start: 20100820, end: 20101213
  3. REBIF [Suspect]
     Route: 058
     Dates: start: 20101224
  4. REBIF [Suspect]
     Indication: MULTIPLE SCLEROSIS
     Route: 058
     Dates: start: 20081114, end: 20100820

REACTIONS (2)
  - RETINAL HAEMORRHAGE [None]
  - RETINAL ISCHAEMIA [None]
